FAERS Safety Report 7585547-1 (Version None)
Quarter: 2011Q2

REPORT INFORMATION
  Report Type: 
  Country: None (occurrence: None)
  Receive Date: 20110624
  Receipt Date: 20110614
  Transmission Date: 20111010
  Serious: Yes (Life-Threatening, Hospitalization)
  Sender: FDA-Public Use
  Company Number: FR-005507

PATIENT
  Age: 56 Year
  Sex: Male

DRUGS (10)
  1. JANUVIA [Suspect]
     Indication: TYPE 2 DIABETES MELLITUS
     Dosage: 100 MG
     Route: 048
     Dates: start: 20091001
  2. PRAZOSIN HCL [Suspect]
     Indication: HYPERTENSION
     Dosage: 5 MG BEFORE 2006
     Route: 048
     Dates: start: 20060101, end: 20100201
  3. ASPIRIN [Suspect]
     Indication: CONGESTIVE CARDIOMYOPATHY
     Dosage: 75 MG
     Route: 048
     Dates: start: 20091201
  4. FENOFIBRATE [Suspect]
     Indication: HYPERTRIGLYCERIDAEMIA
     Dosage: 200 MG, BEFORE 2006
     Route: 048
     Dates: start: 20060101
  5. DIAMICRON (GLICLAZIDE) [Suspect]
     Indication: TYPE 2 DIABETES MELLITUS
     Dosage: 30 MG BEFORE 2006
     Route: 048
     Dates: start: 20060101
  6. DESMOPRESSIN ACETATE [Suspect]
     Indication: DIABETES INSIPIDUS
     Dosage: 300 UG
     Route: 048
     Dates: start: 19950101
  7. ACTOS [Suspect]
     Indication: TYPE 2 DIABETES MELLITUS
     Dosage: 30 MG
     Route: 048
     Dates: start: 20060301, end: 20100201
  8. ALLOPURINOL [Suspect]
     Indication: HYPERURICAEMIA
     Dosage: 300 MG, BEFORE 2006
     Route: 048
     Dates: start: 20060101
  9. PERINDOPRIL ERBUMINE [Suspect]
     Indication: CONGESTIVE CARDIOMYOPATHY
     Dosage: 2.5 MG
     Route: 048
     Dates: start: 20091201
  10. KAYEXALATE [Suspect]
     Indication: HYPERKALAEMIA
     Route: 048
     Dates: start: 20100501

REACTIONS (1)
  - BLADDER TRANSITIONAL CELL CARCINOMA STAGE II [None]
